FAERS Safety Report 9356171 (Version 3)
Quarter: 2013Q4

REPORT INFORMATION
  Report Type: Report from Study
  Country: GB (occurrence: GB)
  Receive Date: 20130619
  Receipt Date: 20131108
  Transmission Date: 20140711
  Serious: Yes (Death, Hospitalization)
  Sender: FDA-Public Use
  Company Number: GB-PFIZER INC-2013179241

PATIENT
  Sex: Male

DRUGS (10)
  1. TYGACIL [Suspect]
     Indication: ABDOMINAL INFECTION
     Dosage: 100 MG, SINGLE
     Route: 042
     Dates: start: 20120917, end: 20120917
  2. TYGACIL [Suspect]
     Dosage: 50 MG, 2X/DAY
     Route: 042
     Dates: start: 20120917, end: 20120920
  3. AMIODARONE [Concomitant]
     Indication: ATRIAL FIBRILLATION
     Dosage: UNK
     Route: 042
     Dates: start: 20120216, end: 20130217
  4. AMIODARONE [Concomitant]
     Dosage: UNK
     Route: 042
     Dates: start: 20120922
  5. FLUCONAZOLE [Concomitant]
     Indication: ABDOMINAL SEPSIS
     Dosage: UNK
     Route: 042
     Dates: start: 20120917
  6. TINZAPARIN SODIUM [Concomitant]
     Indication: EMBOLISM VENOUS
     Dosage: UNK
     Route: 058
     Dates: start: 20120915, end: 20120921
  7. CEFUROXIME [Concomitant]
     Indication: ABDOMINAL SEPSIS
     Dosage: UNK
     Route: 042
     Dates: start: 20120915, end: 20120917
  8. METRONIDAZOLE [Concomitant]
     Indication: ABDOMINAL SEPSIS
     Dosage: UNK
     Route: 042
     Dates: start: 20120915, end: 20120917
  9. PARACETAMOL [Concomitant]
     Indication: ANALGESIC THERAPY
     Dosage: UNK
     Route: 042
     Dates: start: 20120915
  10. OMEPRAZOLE [Concomitant]
     Dosage: UNK
     Route: 042
     Dates: start: 20120915

REACTIONS (5)
  - Pseudomonal bacteraemia [Fatal]
  - Pneumonia [Fatal]
  - Neutropenic sepsis [Fatal]
  - Septic shock [Fatal]
  - Infection [Fatal]
